FAERS Safety Report 23522955 (Version 1)
Quarter: 2024Q1

REPORT INFORMATION
  Report Type: Spontaneous
  Country: US (occurrence: None)
  Receive Date: 20240213
  Receipt Date: 20240213
  Transmission Date: 20240410
  Serious: Yes (Hospitalization, Other)
  Sender: FDA-Public Use
  Company Number: None

PATIENT
  Age: 71 Year
  Sex: Female
  Weight: 68.4 kg

DRUGS (5)
  1. OLANZAPINE [Suspect]
     Active Substance: OLANZAPINE
     Indication: Agitation
     Dosage: FREQUENCY : AT BEDTIME;?
     Route: 048
  2. CITALOPRAM [Suspect]
     Active Substance: CITALOPRAM HYDROBROMIDE
  3. BUPROPION [Suspect]
     Active Substance: BUPROPION
  4. TRAZODONE [Suspect]
     Active Substance: TRAZODONE HYDROCHLORIDE
  5. RIVASTIGMINE [Suspect]
     Active Substance: RIVASTIGMINE

REACTIONS (10)
  - Aggression [None]
  - Cognitive disorder [None]
  - Therapy cessation [None]
  - Unresponsive to stimuli [None]
  - Seizure [None]
  - Depressed level of consciousness [None]
  - Status epilepticus [None]
  - Myoclonus [None]
  - Brain injury [None]
  - Electrocardiogram QT prolonged [None]

NARRATIVE: CASE EVENT DATE: 20231129
